FAERS Safety Report 8126963-9 (Version None)
Quarter: 2012Q1

REPORT INFORMATION
  Report Type: 
  Country: None (occurrence: None)
  Receive Date: 20120210
  Receipt Date: 20120130
  Transmission Date: 20120608
  Serious: Yes (Hospitalization)
  Sender: FDA-Public Use
  Company Number: JP-JNJFOC-20120202324

PATIENT
  Age: 47 Year
  Sex: Female
  Weight: 50 kg

DRUGS (5)
  1. REMICADE [Suspect]
     Route: 042
     Dates: start: 20110929
  2. REMICADE [Suspect]
     Indication: RHEUMATOID ARTHRITIS
     Route: 042
     Dates: start: 20100602
  3. REMICADE [Suspect]
     Dosage: 13TH DOSE
     Route: 042
     Dates: start: 20120119
  4. REMICADE [Suspect]
     Route: 042
     Dates: start: 20101104
  5. METHOTREXATE [Concomitant]
     Route: 048
     Dates: start: 20051101

REACTIONS (8)
  - PALPITATIONS [None]
  - INFUSION RELATED REACTION [None]
  - DYSPNOEA [None]
  - CHILLS [None]
  - BLOOD PRESSURE DECREASED [None]
  - COUGH [None]
  - HEART RATE DECREASED [None]
  - FLUSHING [None]
